FAERS Safety Report 6385281-X (Version None)
Quarter: 2009Q4

REPORT INFORMATION
  Report Type: 
  Country: None (occurrence: None)
  Receive Date: 20091002
  Receipt Date: 20090107
  Transmission Date: 20100525
  Serious: No
  Sender: FDA-Public Use
  Company Number: US-ASTRAZENECA-2008UW15873

PATIENT
  Age: 60 Year
  Sex: Female
  Weight: 52.6 kg

DRUGS (5)
  1. ARIMIDEX [Suspect]
     Indication: BREAST CANCER FEMALE
     Route: 048
     Dates: start: 20050101
  2. ALEVE [Concomitant]
  3. SYNTHROID [Concomitant]
  4. ACTONEL [Concomitant]
  5. BLOOD PRESSURE MEDICATION [Concomitant]
     Indication: BLOOD PRESSURE

REACTIONS (3)
  - ARTHRITIS [None]
  - NEUROPATHY PERIPHERAL [None]
  - PAIN [None]
